FAERS Safety Report 8019167-1 (Version None)
Quarter: 2012Q1

REPORT INFORMATION
  Report Type: 
  Country: None (occurrence: None)
  Receive Date: 20120103
  Receipt Date: 20111229
  Transmission Date: 20120608
  Serious: No
  Sender: FDA-Public Use
  Company Number: US-JNJFOC-20111212682

PATIENT
  Age: 26 Year
  Sex: Female

DRUGS (10)
  1. TPN [Concomitant]
     Indication: MEDICAL DIET
     Route: 065
  2. BILATIN [Concomitant]
     Indication: NUTRITIONAL SUPPORT
     Route: 065
  3. FLAX SEED OIL [Concomitant]
     Indication: NUTRITIONAL SUPPORT
     Route: 065
  4. EVENINIG PRIMROSE OIL [Concomitant]
     Indication: NUTRITIONAL SUPPORT
     Route: 065
  5. VITAMIN D [Concomitant]
     Indication: NUTRITIONAL SUPPORT
     Route: 065
  6. INVEGA [Suspect]
     Route: 048
     Dates: start: 20111222
  7. HORSE CHESTNUT EXTRACT [Concomitant]
     Indication: MEDICAL DIET
     Route: 048
  8. 5 HTP [Concomitant]
     Indication: NUTRITIONAL SUPPORT
     Route: 065
  9. HOPS [Concomitant]
     Indication: NUTRITIONAL SUPPORT
     Route: 048
  10. INVEGA [Suspect]
     Indication: BIPOLAR I DISORDER
     Route: 048

REACTIONS (8)
  - ANGER [None]
  - ABNORMAL LOSS OF WEIGHT [None]
  - DRUG INEFFECTIVE [None]
  - INCREASED APPETITE [None]
  - HEART RATE INCREASED [None]
  - FATIGUE [None]
  - INSOMNIA [None]
  - STRESS [None]
